FAERS Safety Report 5583876-4 (Version None)
Quarter: 2008Q1

REPORT INFORMATION
  Report Type: 
  Country: None (occurrence: None)
  Receive Date: 20080103
  Receipt Date: 20071226
  Transmission Date: 20080703
  Serious: Yes (Other)
  Sender: FDA-Public Use
  Company Number: 2007S1000293

PATIENT
  Sex: Male

DRUGS (9)
  1. SORIATANE [Suspect]
     Indication: TRANSIENT ACANTHOLYTIC DERMATOSIS
     Dosage: 25 MG;QD;PO
     Route: 048
     Dates: start: 20030101, end: 20040201
  2. SORIATANE [Suspect]
     Indication: TRANSIENT ACANTHOLYTIC DERMATOSIS
     Dosage: 25 MG;QD;PO
     Route: 048
     Dates: start: 20071115
  3. DIOVAN [Concomitant]
  4. FLURAZEPAM [Concomitant]
  5. NEXIUM [Concomitant]
  6. ZANTAC [Concomitant]
  7. FLOMAX [Concomitant]
  8. ANDROGEL [Concomitant]
  9. LAMISIL [Concomitant]

REACTIONS (3)
  - BILIARY TRACT DISORDER [None]
  - HEPATIC STEATOSIS [None]
  - PANCREATITIS CHRONIC [None]
